FAERS Safety Report 15372163 (Version 2)
Quarter: 2018Q3

REPORT INFORMATION
  Report Type: Report from Study
  Country: US (occurrence: US)
  Receive Date: 20180911
  Receipt Date: 20180917
  Transmission Date: 20181010
  Serious: Yes (Death, Other)
  Sender: FDA-Public Use
  Company Number: US-EXELIXIS-CABO-18015799

PATIENT
  Age: 65 Year
  Sex: Male

DRUGS (17)
  1. COMETRIQ [Suspect]
     Active Substance: CABOZANTINIB S-MALATE
     Indication: RENAL CANCER
     Dosage: 60 MG, QD
     Route: 048
     Dates: start: 20160409, end: 20170906
  2. SYNTHROID [Concomitant]
     Active Substance: LEVOTHYROXINE SODIUM
  3. KEPPRA [Concomitant]
     Active Substance: LEVETIRACETAM
  4. SENOKOT [Concomitant]
     Active Substance: SENNOSIDES
  5. TRAMADOL. [Concomitant]
     Active Substance: TRAMADOL
  6. VANCOMYCIN [Concomitant]
     Active Substance: VANCOMYCIN
  7. COMETRIQ [Suspect]
     Active Substance: CABOZANTINIB S-MALATE
     Dosage: 60 MG, QD
     Route: 048
     Dates: start: 20171008
  8. CHOLECALCIFEROL [Concomitant]
     Active Substance: CHOLECALCIFEROL
  9. MIRALAX [Concomitant]
     Active Substance: POLYETHYLENE GLYCOL 3350
  10. NAPROXEN. [Concomitant]
     Active Substance: NAPROXEN
  11. ATORVASTATIN CALCIUM. [Concomitant]
     Active Substance: ATORVASTATIN CALCIUM
  12. XGEVA [Concomitant]
     Active Substance: DENOSUMAB
  13. REGLAN [Concomitant]
     Active Substance: METOCLOPRAMIDE HYDROCHLORIDE
  14. ZOFRAN [Concomitant]
     Active Substance: ONDANSETRON HYDROCHLORIDE
  15. PROTONIX [Concomitant]
     Active Substance: PANTOPRAZOLE SODIUM
  16. ZOLOFT [Concomitant]
     Active Substance: SERTRALINE HYDROCHLORIDE
  17. RITALIN [Concomitant]
     Active Substance: METHYLPHENIDATE HYDROCHLORIDE

REACTIONS (5)
  - Malnutrition [Unknown]
  - Death [Fatal]
  - Sleep apnoea syndrome [Unknown]
  - Off label use [Unknown]
  - Pneumonia aspiration [Unknown]

NARRATIVE: CASE EVENT DATE: 20180819
